FAERS Safety Report 5309365-X (Version None)
Quarter: 2007Q2

REPORT INFORMATION
  Report Type: 
  Country: None (occurrence: None)
  Receive Date: 20070425
  Receipt Date: 20070425
  Transmission Date: 20071010
  Serious: Yes (Hospitalization)
  Sender: FDA-Public Use
  Company Number: None

PATIENT
  Age: 72 Year
  Sex: Male
  Weight: 98 kg

DRUGS (17)
  1. CRESTOR [Suspect]
     Indication: BLOOD CHOLESTEROL INCREASED
     Dosage: 10MG PO DAILY
     Route: 048
  2. MEXILETINE HYDROCHLORIDE [Concomitant]
  3. LASIX [Concomitant]
  4. METFORMIN HCL [Concomitant]
  5. ETHMOZINE [Concomitant]
  6. TOPROL-XL [Concomitant]
  7. FLOMAX [Concomitant]
  8. WARFARIN SODIUM [Concomitant]
  9. PAXIL [Concomitant]
  10. MACROBID [Concomitant]
  11. ADVAIR DISKUS 100/50 [Concomitant]
  12. PRILOSEC [Concomitant]
  13. AMBIEN [Concomitant]
  14. ALBUTEROL [Concomitant]
  15. ZETIA [Concomitant]
  16. OCUVITE [Concomitant]
  17. B12 [Concomitant]

REACTIONS (4)
  - ASTHENIA [None]
  - FALL [None]
  - FATIGUE [None]
  - PNEUMONIA ASPIRATION [None]
